FAERS Safety Report 4587872-5 (Version None)
Quarter: 2005Q1

REPORT INFORMATION
  Report Type: 
  Country: None (occurrence: None)
  Receive Date: 20050125
  Receipt Date: 20040831
  Transmission Date: 20050727
  Serious: No
  Sender: FDA-Public Use
  Company Number: USA040977064

PATIENT
  Age: 64 Year
  Sex: Female

DRUGS (8)
  1. FORTEO [Suspect]
     Indication: OSTEOPOROSIS
     Dosage: 20 UG DAY
     Dates: start: 20030701
  2. FLUOXETINE [Concomitant]
  3. PLAVIX [Concomitant]
  4. COZAAR [Concomitant]
  5. HYDROCODONE [Concomitant]
  6. CELEBREX [Concomitant]
  7. VITAMIN E [Concomitant]
  8. ESTROGEN NOS [Concomitant]

REACTIONS (6)
  - ASTHENIA [None]
  - CHEST WALL PAIN [None]
  - DYSPNOEA [None]
  - FEELING HOT [None]
  - HYPERHIDROSIS [None]
  - TREMOR [None]
